FAERS Safety Report 7951268-6 (Version None)
Quarter: 2011Q4

REPORT INFORMATION
  Report Type: 
  Country: None (occurrence: None)
  Receive Date: 20111201
  Receipt Date: 20111121
  Transmission Date: 20120403
  Serious: Yes (Other)
  Sender: FDA-Public Use
  Company Number: US-JNJFOC-20110401732

PATIENT
  Sex: Female
  Weight: 80.74 kg

DRUGS (9)
  1. REMICADE [Suspect]
     Route: 042
     Dates: start: 20091229, end: 20091229
  2. REMICADE [Suspect]
     Indication: CROHN'S DISEASE
     Route: 042
     Dates: end: 20090629
  3. REMICADE [Suspect]
     Route: 042
     Dates: start: 20030101
  4. METHOTREXATE [Concomitant]
     Indication: RHEUMATOID ARTHRITIS
  5. SEROQUEL [Concomitant]
     Indication: SLEEP DISORDER
     Dates: start: 20080101
  6. OXYCODONE HCL [Concomitant]
  7. LORAZEPAM [Concomitant]
     Indication: ANXIETY
     Dates: start: 20090101
  8. METHOTREXATE [Concomitant]
     Dates: start: 20090101
  9. CYMBALTA [Concomitant]
     Indication: DEPRESSION
     Dates: start: 20080101

REACTIONS (20)
  - EAR INFECTION [None]
  - RHEUMATOID ARTHRITIS [None]
  - ACTIVITIES OF DAILY LIVING IMPAIRED [None]
  - IMPAIRED WORK ABILITY [None]
  - PSORIATIC ARTHROPATHY [None]
  - JOINT SWELLING [None]
  - ALOPECIA [None]
  - PYREXIA [None]
  - STRESS [None]
  - ANTINUCLEAR ANTIBODY POSITIVE [None]
  - DEPRESSION [None]
  - RASH GENERALISED [None]
  - PSORIASIS [None]
  - ECZEMA [None]
  - ARTHRALGIA [None]
  - ANXIETY [None]
  - JOINT EFFUSION [None]
  - COUGH [None]
  - ONYCHOMADESIS [None]
  - ONYCHOCLASIS [None]
